FAERS Safety Report 13167455 (Version 1)
Quarter: 2017Q1

REPORT INFORMATION
  Report Type: Spontaneous
  Country: US (occurrence: US)
  Receive Date: 20170127
  Receipt Date: 20170127
  Transmission Date: 20170428
  Serious: Yes (Hospitalization)
  Sender: FDA-Public Use
  Company Number: None

PATIENT
  Age: 9 Year
  Sex: Male
  Weight: 34 kg

DRUGS (14)
  1. CBD HEMP OIL IN MCT [Suspect]
     Active Substance: CANNABIDIOL
     Indication: SEIZURE CLUSTER
     Route: 048
  2. DIASTAT [Concomitant]
     Active Substance: DIAZEPAM
  3. IBUPROFEN. [Concomitant]
     Active Substance: IBUPROFEN
  4. FOUNDATION 1 VITAMIN [Concomitant]
  5. FELBAMATE. [Concomitant]
     Active Substance: FELBAMATE
  6. PYRIDOXINE [Concomitant]
     Active Substance: PYRIDOXINE
  7. CORTEF [Concomitant]
     Active Substance: HYDROCORTISONE
  8. LANSOPRAZOLE. [Concomitant]
     Active Substance: LANSOPRAZOLE
  9. SHEA BUTTER [Concomitant]
     Active Substance: SHEA BUTTER
  10. LAVENDER OIL [Concomitant]
     Active Substance: LAVENDER OIL
  11. DESMOPRESSIN [Concomitant]
     Active Substance: DESMOPRESSIN
  12. COCONUT OIL [Concomitant]
     Active Substance: COCONUT OIL
  13. AVOCADO OIL [Concomitant]
     Active Substance: AVOCADO OIL
  14. MELATONIN [Concomitant]
     Active Substance: MELATONIN

REACTIONS (3)
  - Mental status changes [None]
  - Incorrect dose administered [None]
  - Respiratory disorder [None]

NARRATIVE: CASE EVENT DATE: 20170126
